FAERS Safety Report 6371469-0 (Version None)
Quarter: 2009Q3

REPORT INFORMATION
  Report Type: 
  Country: None (occurrence: None)
  Receive Date: 20090923
  Receipt Date: 20071109
  Transmission Date: 20100115
  Serious: Yes (Hospitalization)
  Sender: FDA-Public Use
  Company Number: US-ASTRAZENECA-2007UW10962

PATIENT
  Age: 6303 Day
  Sex: Female
  Weight: 91.2 kg

DRUGS (10)
  1. SEROQUEL [Suspect]
     Indication: SLEEP DISORDER THERAPY
     Route: 048
     Dates: start: 19970101, end: 20050601
  2. SEROQUEL [Suspect]
     Route: 048
     Dates: start: 20020222
  3. METFORMIN HCL [Concomitant]
     Dates: start: 20021107
  4. PAXIL [Concomitant]
     Dates: start: 20020222
  5. DEPAKOTE [Concomitant]
     Dates: start: 20020222
  6. RISPERDAL [Concomitant]
     Dates: start: 19981113
  7. ACTOS [Concomitant]
     Dates: start: 20051109
  8. HALOPERIDOL [Concomitant]
     Dates: start: 20051109
  9. GEODON [Concomitant]
     Dosage: 40 MG, TWO TABLETS, AT NIGHT
     Dates: start: 20051109
  10. PROPRANOLOL [Concomitant]
     Dates: start: 20051109

REACTIONS (5)
  - ACANTHOSIS NIGRICANS [None]
  - DIABETES MELLITUS [None]
  - HYPERGLYCAEMIA [None]
  - OBESITY [None]
  - TYPE 2 DIABETES MELLITUS [None]
